FAERS Safety Report 9461537 (Version 3)
Quarter: 2014Q1

REPORT INFORMATION
  Report Type: Spontaneous
  Country: US (occurrence: US)
  Receive Date: 20130816
  Receipt Date: 20140122
  Transmission Date: 20141002
  Serious: Yes (Death)
  Sender: FDA-Public Use
  Company Number: US-BRISTOL-MYERS SQUIBB COMPANY-19184233

PATIENT
  Age: 81 Year
  Sex: Male

DRUGS (13)
  1. ELIQUIS [Suspect]
     Indication: CORONARY ARTERY DISEASE
     Route: 048
     Dates: start: 20130705
  2. SIMVASTATIN [Concomitant]
  3. METFORMIN [Concomitant]
  4. LISINOPRIL [Concomitant]
  5. LANOXIN [Concomitant]
  6. HYDROXYZINE [Concomitant]
  7. LANOXIN [Concomitant]
  8. ROPINIROLE [Concomitant]
  9. HALDOL [Concomitant]
  10. CYMBALTA [Concomitant]
  11. PLAVIX [Concomitant]
  12. ASA [Concomitant]
  13. ALLOPURINOL [Concomitant]

REACTIONS (1)
  - Cerebrovascular accident [Fatal]
